FAERS Safety Report 9208995 (Version 1)
Quarter: 2013Q1

REPORT INFORMATION
  Report Type: Spontaneous
  Country: US (occurrence: None)
  Receive Date: 20120820
  Receipt Date: 20120820
  Transmission Date: 20140127
  Serious: Yes (Hospitalization)
  Sender: FDA-Public Use
  Company Number: 058366

PATIENT
  Sex: Male
  Weight: 65.8 kg

DRUGS (5)
  1. LACOSAMIDE [Suspect]
     Indication: EPILEPSY
     Route: 048
     Dates: start: 20120217, end: 20120224
  2. KEPPRA [Concomitant]
  3. ASA [Concomitant]
  4. PRAVACHOL [Concomitant]
  5. CELEXA /00582602/ [Concomitant]

REACTIONS (5)
  - Fall [None]
  - Gait disturbance [None]
  - Memory impairment [None]
  - Cognitive disorder [None]
  - Feeling abnormal [None]
